FAERS Safety Report 14824346 (Version 1)
Quarter: 2018Q2

REPORT INFORMATION
  Report Type: Spontaneous
  Country: US (occurrence: US)
  Receive Date: 20180429
  Receipt Date: 20180429
  Transmission Date: 20180711
  Serious: No
  Sender: FDA-Public Use
  Company Number: US-JNJFOC-20180417692

PATIENT
  Age: 5 Year
  Sex: Male

DRUGS (2)
  1. RISPERDAL [Suspect]
     Active Substance: RISPERIDONE
     Indication: PRODUCT USED FOR UNKNOWN INDICATION
     Dosage: AT 7.45 AM AND AT 12.30
     Route: 048
  2. CLONIDINE. [Concomitant]
     Active Substance: CLONIDINE
     Route: 065

REACTIONS (5)
  - Attention deficit/hyperactivity disorder [Unknown]
  - Abnormal behaviour [Unknown]
  - Drug dose omission [Unknown]
  - Sleep disorder [Unknown]
  - Oppositional defiant disorder [Unknown]
